FAERS Safety Report 9123284 (Version 2)
Quarter: 2013Q2

REPORT INFORMATION
  Report Type: Report from Study
  Country: US (occurrence: US)
  Receive Date: 20130227
  Receipt Date: 20130517
  Transmission Date: 20140414
  Serious: Yes (Other)
  Sender: FDA-Public Use
  Company Number: US-UCBSA-079172

PATIENT
  Age: 81 Year
  Sex: Female
  Weight: 46 kg

DRUGS (9)
  1. CIMZIA [Suspect]
     Indication: CROHN^S DISEASE
     Dosage: 400 MG AT WEEKS 0,2,4 AND THEN EVERY 4 WEEKS.
     Route: 058
     Dates: start: 20090831, end: 20090914
  2. TYLENOL ES [Concomitant]
     Indication: PAIN
     Dosage: 1000 MG Q6H (EVERY SIX HOURS) PRN
     Route: 048
     Dates: start: 20100421
  3. CITRACAL  D [Concomitant]
     Indication: SUPPLEMENTATION THERAPY
  4. CITRACAL  D [Concomitant]
     Indication: SUPPLEMENTATION THERAPY
     Dosage: 400 MG -500 IU
     Route: 048
     Dates: start: 20100422
  5. METOPROLOL [Concomitant]
     Indication: HYPERTENSION
     Route: 048
     Dates: start: 20100422
  6. MULTIVITAMIN [Concomitant]
     Indication: SUPPLEMENTATION THERAPY
     Dosage: DAILY DOSE : 1/DAY
     Route: 048
     Dates: start: 2009
  7. NYSTATIN [Concomitant]
     Indication: FUNGAL INFECTION
     Dosage: POWDER
     Route: 061
     Dates: start: 20100422
  8. VANIQA [Concomitant]
     Indication: HAIR GROWTH ABNORMAL
     Dosage: 13.9%, TO CHIN AND UPPER LIP
     Route: 061
     Dates: start: 20120309
  9. HYDROCORTISONE [Concomitant]
     Indication: PRURITUS
     Dosage: 1% OINTMENT, TWO TIMES DAILY AS REQUIRED
     Route: 061
     Dates: start: 2012

REACTIONS (1)
  - Basal cell carcinoma [Recovered/Resolved]
